FAERS Safety Report 10353674 (Version 2)
Quarter: 2014Q3

REPORT INFORMATION
  Report Type: Spontaneous
  Country: US (occurrence: US)
  Receive Date: 20140731
  Receipt Date: 20140731
  Transmission Date: 20150326
  Serious: Yes (Hospitalization, Other)
  Sender: FDA-Public Use
  Company Number: US-AMGEN-USASP2012006383

PATIENT
  Age: 62 Year
  Sex: Female

DRUGS (1)
  1. ENBREL [Suspect]
     Active Substance: ETANERCEPT
     Indication: RHEUMATOID ARTHRITIS
     Dosage: 50 MG, QWK
     Route: 065
     Dates: start: 19991001, end: 201312

REACTIONS (7)
  - Renal impairment [Not Recovered/Not Resolved]
  - Large intestine perforation [Recovered/Resolved]
  - Fatigue [Not Recovered/Not Resolved]
  - Dialysis device insertion [Recovered/Resolved]
  - Confusional state [Recovered/Resolved]
  - Amnesia [Recovered/Resolved]
  - Colostomy closure [Recovered/Resolved]

NARRATIVE: CASE EVENT DATE: 2005
